FAERS Safety Report 4801071-0 (Version None)
Quarter: 2005Q4

REPORT INFORMATION
  Report Type: 
  Country: None (occurrence: None)
  Receive Date: 20051012
  Receipt Date: 20051003
  Transmission Date: 20060501
  Serious: Yes (Other)
  Sender: FDA-Public Use
  Company Number: 2005058588

PATIENT
  Age: 38 Year
  Sex: Female
  Weight: 78 kg

DRUGS (5)
  1. GENOTROPIN [Suspect]
     Indication: HYPOPITUITARISM
     Dosage: 0.8 MG (0.8 MG, DAILY)
     Dates: start: 19941012, end: 19990430
  2. PROPRANOLOL [Concomitant]
  3. HYDROCORTISONE [Concomitant]
  4. DOMPERIDONE (DOMPERIDONE) [Concomitant]
  5. MENOPUR (MENOTROPHIN) [Concomitant]

REACTIONS (4)
  - ABORTION SPONTANEOUS [None]
  - DRUG EXPOSURE DURING PREGNANCY [None]
  - PREGNANCY [None]
  - SINUS TACHYCARDIA [None]
